FAERS Safety Report 8919059 (Version 1)
Quarter: 2012Q4

REPORT INFORMATION
  Report Type: 
  Country: US (occurrence: US)
  Receive Date: 20121121
  Receipt Date: 20121121
  Transmission Date: 20130627
  Serious: No
  Sender: FDA-Public Use
  Company Number: US-ASTRAZENECA-2012SE24152

PATIENT
  Age: 43 Year
  Sex: Female
  Weight: 46.7 kg

DRUGS (7)
  1. NEXIUM [Suspect]
     Indication: GASTROOESOPHAGEAL REFLUX DISEASE
     Route: 048
  2. SINGULAIR [Concomitant]
     Indication: ASTHMA
  3. LIPITOR [Concomitant]
     Indication: BLOOD CHOLESTEROL ABNORMAL
  4. JANUVIA [Concomitant]
     Indication: BLOOD GLUCOSE ABNORMAL
  5. PROBIOTIC [Concomitant]
     Indication: GASTRIC DISORDER
  6. VITAMIN C [Concomitant]
  7. VITAMIN D [Concomitant]

REACTIONS (4)
  - Nasopharyngitis [Unknown]
  - Cough [Unknown]
  - Sneezing [Unknown]
  - Sinusitis [Unknown]
